FAERS Safety Report 9602670 (Version 1)
Quarter: 2013Q4

REPORT INFORMATION
  Report Type: Spontaneous
  Country: DE (occurrence: None)
  Receive Date: 20131003
  Receipt Date: 20131003
  Transmission Date: 20140711
  Serious: Yes (Hospitalization)
  Sender: FDA-Public Use
  Company Number: 7239761

PATIENT
  Sex: Female

DRUGS (1)
  1. LEVOTHYROXINE (LEVOTHYROXINE) (LEVOTHRYOXINE SODIUM) [Suspect]
     Indication: HYPOTHYROIDISM

REACTIONS (1)
  - Adrenocortical insufficiency acute [None]
